FAERS Safety Report 7660081-9 (Version None)
Quarter: 2011Q3

REPORT INFORMATION
  Report Type: 
  Country: None (occurrence: None)
  Receive Date: 20110802
  Receipt Date: 20110720
  Transmission Date: 20111222
  Serious: Yes (Other)
  Sender: FDA-Public Use
  Company Number: DSA_47268_2011

PATIENT
  Sex: Male

DRUGS (5)
  1. BUPROPION HYDROCHLORIDE [Suspect]
     Indication: DEPRESSION
     Dosage: (150 MG), (300 MG)
     Dates: start: 20110401, end: 20110701
  2. BUPROPION HYDROCHLORIDE [Suspect]
     Indication: DEPRESSION
     Dosage: (150 MG), (300 MG)
     Dates: start: 20110701
  3. CONCERTA [Concomitant]
  4. WELLBUTRIN XL [Suspect]
     Indication: DEPRESSION
     Dosage: (300 MG)
  5. IMOVANE [Concomitant]

REACTIONS (2)
  - HALLUCINATION [None]
  - NIGHTMARE [None]
